FAERS Safety Report 10395836 (Version 1)
Quarter: 2014Q1

REPORT INFORMATION
  Report Type: Spontaneous
  Country: US (occurrence: None)
  Receive Date: 20130524
  Receipt Date: 20130524
  Transmission Date: 20141002
  Serious: No
  Sender: FDA-Public Use
  Company Number: PHEH2012US001696

PATIENT
  Age: 32 Year
  Sex: Female

DRUGS (1)
  1. GILENYA (FTY) CAPSULE, 0.5MG [Suspect]
     Indication: RELAPSING-REMITTING MULTIPLE SCLEROSIS
     Route: 048
     Dates: start: 201101

REACTIONS (4)
  - Hepatic enzyme increased [None]
  - Oedema peripheral [None]
  - Alanine aminotransferase increased [None]
  - Aspartate aminotransferase increased [None]
